FAERS Safety Report 16662240 (Version 1)
Quarter: 2019Q3

REPORT INFORMATION
  Report Type: Report from Study
  Country: US (occurrence: US)
  Receive Date: 20190802
  Receipt Date: 20190802
  Transmission Date: 20191004
  Serious: No
  Sender: FDA-Public Use
  Company Number: US-EXELIXIS-CABO-18017673

PATIENT
  Sex: Male
  Weight: 72.11 kg

DRUGS (1)
  1. CABOMETYX [Suspect]
     Active Substance: CABOZANTINIB S-MALATE
     Indication: RENAL CELL CARCINOMA
     Dosage: 40 MG, QD
     Route: 048
     Dates: start: 201811

REACTIONS (10)
  - Decreased appetite [Unknown]
  - Nasal disorder [Unknown]
  - Constipation [Recovered/Resolved]
  - Diarrhoea [Recovering/Resolving]
  - Dysphonia [Unknown]
  - Stomatitis [Unknown]
  - Gout [Unknown]
  - Weight abnormal [Unknown]
  - Nausea [Unknown]
  - Oral pain [Unknown]

NARRATIVE: CASE EVENT DATE: 2018
